FAERS Safety Report 6701918-7 (Version None)
Quarter: 2010Q2

REPORT INFORMATION
  Report Type: 
  Country: None (occurrence: None)
  Receive Date: 20100429
  Receipt Date: 20100419
  Transmission Date: 20101027
  Serious: Yes (Other)
  Sender: FDA-Public Use
  Company Number: US-PFIZER INC-2008003453

PATIENT
  Sex: Male

DRUGS (2)
  1. CHANTIX [Suspect]
     Dosage: UNK
     Route: 048
     Dates: start: 20080801, end: 20081101
  2. TOPROL-XL [Concomitant]
     Indication: HYPERTENSION
     Dosage: 60 MG, 2X/DAY
     Route: 048

REACTIONS (5)
  - ABNORMAL DREAMS [None]
  - AGITATION [None]
  - DEPRESSION [None]
  - INSOMNIA [None]
  - MENTAL DISORDER [None]
